FAERS Safety Report 16943473 (Version 2)
Quarter: 2019Q4

REPORT INFORMATION
  Report Type: Report from Study
  Country: None (occurrence: CA)
  Receive Date: 20191022
  Receipt Date: 20191120
  Transmission Date: 20200122
  Serious: Yes (Other)
  Sender: FDA-Public Use
  Company Number: CA-ABBVIE-19K-028-2732426-00

PATIENT
  Sex: Female

DRUGS (1)
  1. HUMIRA [Suspect]
     Active Substance: ADALIMUMAB
     Indication: HIDRADENITIS
     Route: 058
     Dates: start: 20181106

REACTIONS (5)
  - Axillary mass [Not Recovered/Not Resolved]
  - Furuncle [Not Recovered/Not Resolved]
  - Breast cancer female [Unknown]
  - Nasopharyngitis [Not Recovered/Not Resolved]
  - Axillary pain [Not Recovered/Not Resolved]
